FAERS Safety Report 8738149 (Version 2)
Quarter: 2013Q4

REPORT INFORMATION
  Report Type: Spontaneous
  Country: US (occurrence: US)
  Receive Date: 20120823
  Receipt Date: 20131031
  Transmission Date: 20140711
  Serious: Yes (Hospitalization, Other)
  Sender: FDA-Public Use
  Company Number: US-009507513-1208USA005139

PATIENT
  Age: 78 Year
  Sex: Male

DRUGS (2)
  1. ZOCOR [Suspect]
     Dosage: 80 MG
     Route: 048
     Dates: start: 20010729, end: 200606
  2. ZOCOR [Suspect]
     Dosage: 80 MG
     Route: 048
     Dates: start: 20060907, end: 201009

REACTIONS (23)
  - Renal failure acute [Unknown]
  - Cardiac output decreased [Unknown]
  - Anaemia [Unknown]
  - Normochromic normocytic anaemia [Unknown]
  - Hypokalaemia [Unknown]
  - Hyperkalaemia [Unknown]
  - Hyponatraemia [Unknown]
  - Thrombocytopenia [Unknown]
  - Haemorrhoids [Unknown]
  - Mucosal atrophy [Unknown]
  - Diverticulum [Unknown]
  - Helicobacter infection [Unknown]
  - Asthenia [Unknown]
  - Troponin increased [Unknown]
  - Rhabdomyolysis [Recovering/Resolving]
  - Hypotension [Unknown]
  - Transaminases increased [Recovering/Resolving]
  - Peptic ulcer [Unknown]
  - Acute myocardial infarction [Unknown]
  - Gastrointestinal haemorrhage [Unknown]
  - Dehydration [Unknown]
  - Hypovolaemia [Unknown]
  - Renal failure chronic [Unknown]
